FAERS Safety Report 6078082-3 (Version None)
Quarter: 2009Q1

REPORT INFORMATION
  Report Type: 
  Country: None (occurrence: None)
  Receive Date: 20090213
  Receipt Date: 20090210
  Transmission Date: 20090719
  Serious: Yes (Other)
  Sender: FDA-Public Use
  Company Number: US-BAYER-200814823BCC

PATIENT
  Sex: Female
  Weight: 59 kg

DRUGS (6)
  1. NEO-SYNEPHRINE EXTRA STRENGTH 1% SPRAY [Suspect]
     Indication: NASAL OEDEMA
     Route: 045
  2. NEO-SYNEPHRINE EXTRA STRENGTH 1% SPRAY [Suspect]
     Route: 045
  3. SUDAFED 12 HOUR [Concomitant]
  4. AFRIN [Concomitant]
  5. DRISTAN [Concomitant]
  6. RHINOCORT [Concomitant]

REACTIONS (2)
  - DEPENDENCE [None]
  - NASAL CONGESTION [None]
